FAERS Safety Report 25100678 (Version 1)
Quarter: 2025Q1

REPORT INFORMATION
  Report Type: Spontaneous
  Country: US (occurrence: US)
  Receive Date: 20250320
  Receipt Date: 20250320
  Transmission Date: 20250409
  Serious: Yes (Hospitalization)
  Sender: MYLAN
  Company Number: US-MYLANLABS-2025M1023899

PATIENT
  Age: 43 Year
  Sex: Female

DRUGS (8)
  1. ETOPOSIDE [Suspect]
     Active Substance: ETOPOSIDE
     Indication: Adrenocortical carcinoma
  2. ETOPOSIDE [Suspect]
     Active Substance: ETOPOSIDE
     Indication: Metastases to liver
  3. DOXORUBICIN [Suspect]
     Active Substance: DOXORUBICIN
     Indication: Adrenocortical carcinoma
  4. DOXORUBICIN [Suspect]
     Active Substance: DOXORUBICIN
     Indication: Metastases to liver
  5. CISPLATIN [Suspect]
     Active Substance: CISPLATIN
     Indication: Adrenocortical carcinoma
  6. CISPLATIN [Suspect]
     Active Substance: CISPLATIN
     Indication: Metastases to liver
  7. MITOTANE [Suspect]
     Active Substance: MITOTANE
     Indication: Adrenocortical carcinoma
  8. MITOTANE [Suspect]
     Active Substance: MITOTANE
     Indication: Metastases to liver

REACTIONS (2)
  - Disease progression [Unknown]
  - Drug ineffective [Unknown]
